FAERS Safety Report 5661276-6 (Version None)
Quarter: 2008Q1

REPORT INFORMATION
  Report Type: 
  Country: None (occurrence: None)
  Receive Date: 20080312
  Receipt Date: 20080307
  Transmission Date: 20080703
  Serious: Yes (Other)
  Sender: FDA-Public Use
  Company Number: B0511829A

PATIENT
  Age: 54 Year
  Sex: Male

DRUGS (5)
  1. ZYBAN [Suspect]
     Route: 048
     Dates: start: 20080101, end: 20080303
  2. CORTISONE [Concomitant]
  3. SINGULAIR [Concomitant]
  4. FLIXOTIDE [Concomitant]
  5. ATROVENT COMP [Concomitant]

REACTIONS (1)
  - PSORIASIS [None]
